FAERS Safety Report 11427527 (Version 1)
Quarter: 2015Q3

REPORT INFORMATION
  Report Type: Spontaneous
  Country: US (occurrence: US)
  Receive Date: 20150827
  Receipt Date: 20150827
  Transmission Date: 20151125
  Serious: No
  Sender: FDA-Public Use
  Company Number: US-SA-2015SA051829

PATIENT
  Age: 22 Year
  Sex: Male
  Weight: 99.7 kg

DRUGS (8)
  1. DIPHENHYDRAMINE. [Concomitant]
     Active Substance: DIPHENHYDRAMINE
     Indication: ANAPHYLACTIC REACTION
     Route: 048
     Dates: start: 20150203
  2. FABRAZYME [Suspect]
     Active Substance: AGALSIDASE BETA
     Indication: LIPIDOSIS
     Route: 041
  3. NORMAL SALINE [Concomitant]
     Active Substance: SODIUM CHLORIDE
     Dosage: STRENGTH: 0.9%
     Route: 042
     Dates: start: 20150203
  4. ACETAMINOPHEN. [Concomitant]
     Active Substance: ACETAMINOPHEN
     Dosage: PRIOR TO INFUSION
     Route: 048
     Dates: start: 20150203
  5. TYLENOL [Concomitant]
     Active Substance: ACETAMINOPHEN
     Dosage: DOSE: 1 DOSE ; STRENGTH: 325 MG
     Route: 048
     Dates: start: 20130912
  6. HEPARIN [Concomitant]
     Active Substance: HEPARIN SODIUM
     Dosage: ROUTE: IV FLUSH; STRENGTH: 100 UNITS/ML
     Dates: start: 20150203
  7. CETIRIZINE [Concomitant]
     Active Substance: CETIRIZINE HYDROCHLORIDE
     Dosage: PRIOR TO INFUSION
     Route: 048
     Dates: start: 20150203
  8. ZYRTEC [Concomitant]
     Active Substance: CETIRIZINE HYDROCHLORIDE
     Route: 048
     Dates: start: 20141118

REACTIONS (2)
  - Mood altered [Not Recovered/Not Resolved]
  - Fatigue [Not Recovered/Not Resolved]
